FAERS Safety Report 14343775 (Version 3)
Quarter: 2018Q2

REPORT INFORMATION
  Report Type: Spontaneous
  Country: ES (occurrence: ES)
  Receive Date: 20180102
  Receipt Date: 20180628
  Transmission Date: 20180711
  Serious: Yes (Other)
  Sender: FDA-Public Use
  Company Number: ES-SHIRE-ES201735343

PATIENT

DRUGS (14)
  1. PENTASA [Suspect]
     Active Substance: MESALAMINE
     Dosage: UNK
     Route: 048
     Dates: start: 200710, end: 201006
  2. MESALAZINE [Suspect]
     Active Substance: MESALAMINE
     Dosage: UNK
     Route: 054
     Dates: start: 200909
  3. 476 (MESALAZINE/MESALAMINE) [Suspect]
     Active Substance: MESALAMINE
     Dosage: UNK
     Route: 048
     Dates: start: 200710, end: 201006
  4. IMUREL [Suspect]
     Active Substance: AZATHIOPRINE SODIUM
     Indication: COLITIS ULCERATIVE
     Dosage: 4 DF, QD
     Route: 065
     Dates: start: 201006
  5. SALOFALK                           /00747601/ [Suspect]
     Active Substance: MESALAMINE
     Indication: COLITIS ULCERATIVE
     Dosage: UNK
     Route: 065
     Dates: start: 201006
  6. 476 (MESALAZINE/MESALAMINE) [Suspect]
     Active Substance: MESALAMINE
     Indication: COLITIS ULCERATIVE
     Dosage: UNK
     Route: 054
     Dates: start: 200710, end: 200909
  7. IMUREL [Suspect]
     Active Substance: AZATHIOPRINE SODIUM
     Dosage: UNK, QD
     Route: 065
  8. CLIPPER [Suspect]
     Active Substance: BECLOMETHASONE DIPROPIONATE
     Indication: COLITIS ULCERATIVE
     Dosage: UNK
     Route: 065
     Dates: start: 200812
  9. IMUREL [Suspect]
     Active Substance: AZATHIOPRINE SODIUM
     Dosage: 1 DF, QD
     Route: 065
     Dates: start: 200903
  10. MESALAZINE [Suspect]
     Active Substance: MESALAMINE
     Indication: COLITIS ULCERATIVE
     Dosage: UNK
     Route: 048
     Dates: start: 200909
  11. LYRICA [Suspect]
     Active Substance: PREGABALIN
     Indication: BACK PAIN
     Dosage: UNK
     Route: 065
     Dates: start: 200903
  12. PENTASA [Suspect]
     Active Substance: MESALAMINE
     Indication: COLITIS ULCERATIVE
     Dosage: UNK
     Route: 054
     Dates: start: 200710, end: 200909
  13. ALANERV [Concomitant]
     Active Substance: DIETARY SUPPLEMENT
     Indication: PRODUCT USED FOR UNKNOWN INDICATION
  14. 476 (MESALAZINE/MESALAMINE) [Suspect]
     Active Substance: MESALAMINE
     Dosage: UNK
     Route: 048
     Dates: start: 200909

REACTIONS (11)
  - Colitis ulcerative [Unknown]
  - Malaise [Recovered/Resolved]
  - Nausea [Unknown]
  - Condition aggravated [Unknown]
  - Fatigue [Unknown]
  - Weight increased [Unknown]
  - Haemolytic uraemic syndrome [Unknown]
  - Thrombocytopenic purpura [Unknown]
  - Hypertension [Unknown]
  - Dizziness [Unknown]
  - Feeling abnormal [Recovered/Resolved]

NARRATIVE: CASE EVENT DATE: 200903
